FAERS Safety Report 5800845-7 (Version None)
Quarter: 2008Q3

REPORT INFORMATION
  Report Type: 
  Country: None (occurrence: None)
  Receive Date: 20080701
  Receipt Date: 20080619
  Transmission Date: 20090109
  Serious: Yes (Hospitalization)
  Sender: FDA-Public Use
  Company Number: 2008BI010286

PATIENT
  Age: 42 Year
  Sex: Female

DRUGS (7)
  1. TYSABRI [Suspect]
     Indication: RELAPSING-REMITTING MULTIPLE SCLEROSIS
     Dosage: 300 MG;QM;IV
     Route: 042
     Dates: start: 20070425
  2. PAROXETINE HCL [Concomitant]
  3. CLONAZEPAM [Concomitant]
  4. FLURBIPROFENE COLLYRIUM [Concomitant]
  5. PIROXICAM [Concomitant]
  6. OLMESARTAN MEDOXOMIL [Concomitant]
  7. BETAFERON [Concomitant]

REACTIONS (2)
  - BLOOD PRESSURE DIASTOLIC INCREASED [None]
  - ISCHAEMIC STROKE [None]
